FAERS Safety Report 7213253-1 (Version None)
Quarter: 2011Q1

REPORT INFORMATION
  Report Type: 
  Country: None (occurrence: None)
  Receive Date: 20110106
  Receipt Date: 20101227
  Transmission Date: 20110831
  Serious: Yes (Death, Hospitalization)
  Sender: FDA-Public Use
  Company Number: US-ACTELION-A-US2010-42211

PATIENT

DRUGS (2)
  1. ILOPROST INHALATION SOLUTION UNKNOWN US [Suspect]
     Indication: PULMONARY ARTERIAL HYPERTENSION
     Dosage: 5
     Route: 055
     Dates: start: 20091123, end: 20101114
  2. REVATIO [Concomitant]

REACTIONS (3)
  - SUBDURAL HAEMATOMA [None]
  - CONVULSION [None]
  - FALL [None]
